FAERS Safety Report 12125216 (Version 2)
Quarter: 2016Q1

REPORT INFORMATION
  Report Type: Report from Study
  Country: US (occurrence: US)
  Receive Date: 20160229
  Receipt Date: 20160229
  Transmission Date: 20160526
  Serious: No
  Sender: FDA-Public Use
  Company Number: US-ABBVIE-15P-163-1426363-00

PATIENT
  Sex: Male

DRUGS (3)
  1. ANDROGEL [Suspect]
     Active Substance: TESTOSTERONE
     Indication: BLOOD TESTOSTERONE DECREASED
     Dosage: FOUR PUMPS DAILY
     Route: 061
     Dates: end: 201410
  2. ANDROGEL [Suspect]
     Active Substance: TESTOSTERONE
     Dosage: FOUR PUMPS DAILY
     Route: 061
     Dates: start: 201505
  3. ANDROGEL [Suspect]
     Active Substance: TESTOSTERONE
     Indication: BLOOD TESTOSTERONE DECREASED
     Dosage: THREE PUMPS DAILY
     Route: 061
     Dates: start: 201410, end: 201505

REACTIONS (1)
  - Blood testosterone decreased [Not Recovered/Not Resolved]

NARRATIVE: CASE EVENT DATE: 201410
